FAERS Safety Report 18105348 (Version 1)
Quarter: 2020Q3

REPORT INFORMATION
  Report Type: Spontaneous
  Country: CZ (occurrence: CZ)
  Receive Date: 20200804
  Receipt Date: 20200804
  Transmission Date: 20201103
  Serious: Yes (Other)
  Sender: FDA-Public Use
  Company Number: CZ-SUN PHARMACEUTICAL INDUSTRIES LTD-2020RR-256052

PATIENT
  Age: 46 Year
  Sex: Female

DRUGS (4)
  1. CISPLATIN. [Suspect]
     Active Substance: CISPLATIN
     Indication: LUNG ADENOCARCINOMA
     Dosage: FOUR CYCLES
     Route: 065
  2. PEMETREXED. [Suspect]
     Active Substance: PEMETREXED
     Indication: LUNG ADENOCARCINOMA
     Dosage: FOUR CYCLES
     Route: 065
     Dates: start: 201702, end: 201706
  3. PEMETREXED. [Suspect]
     Active Substance: PEMETREXED
     Dosage: THREE CYCLES FOR MAINTENANCE
     Route: 065
  4. GEMCITABINE. [Suspect]
     Active Substance: GEMCITABINE
     Indication: LUNG ADENOCARCINOMA
     Dosage: 4 CYCLES
     Route: 065
     Dates: start: 201707, end: 201709

REACTIONS (2)
  - Disease progression [Recovering/Resolving]
  - Condition aggravated [Recovering/Resolving]
